FAERS Safety Report 8560798-8 (Version None)
Quarter: 2012Q3

REPORT INFORMATION
  Report Type: 
  Country: None (occurrence: None)
  Receive Date: 20120802
  Receipt Date: 20120726
  Transmission Date: 20120928
  Serious: Yes (Hospitalization)
  Sender: FDA-Public Use
  Company Number: BR-GLAXOSMITHKLINE-A0987940A

PATIENT
  Sex: Female

DRUGS (1)
  1. NICOTINE [Suspect]

REACTIONS (2)
  - ADVERSE EVENT [None]
  - VOMITING [None]
